FAERS Safety Report 4351312-1 (Version None)
Quarter: 2004Q2

REPORT INFORMATION
  Report Type: 
  Country: None (occurrence: None)
  Receive Date: 20040428
  Receipt Date: 20040412
  Transmission Date: 20050107
  Serious: Yes (Other)
  Sender: FDA-Public Use
  Company Number: USA040361626

PATIENT
  Age: 77 Year
  Sex: Female

DRUGS (15)
  1. FORTEO [Suspect]
     Indication: OSTEOPOROSIS
     Dates: start: 20030514
  2. ZYPREXA [Suspect]
     Indication: DEPRESSION
     Dosage: 5 MG
  3. LACTULOSE [Concomitant]
  4. CELEBREX [Concomitant]
  5. FOLIC ACID [Concomitant]
  6. LISINOPRIL [Concomitant]
  7. HYDROCHLOROTHIAZIDE [Concomitant]
  8. SYNTHROID [Concomitant]
  9. ALLOPURINOL TAB [Concomitant]
  10. DITROPAN [Concomitant]
  11. XANAX [Concomitant]
  12. MILK OF MAGNESIA TAB [Concomitant]
  13. COUMADIN [Concomitant]
  14. REMERON [Concomitant]
  15. EFFEXOR [Concomitant]

REACTIONS (5)
  - BLOOD POTASSIUM INCREASED [None]
  - BONE DENSITY DECREASED [None]
  - HIP ARTHROPLASTY [None]
  - KNEE ARTHROPLASTY [None]
  - SKIN DISORDER [None]
